FAERS Safety Report 17560517 (Version 3)
Quarter: 2020Q3

REPORT INFORMATION
  Report Type: Spontaneous
  Country: US (occurrence: US)
  Receive Date: 20200319
  Receipt Date: 20200914
  Transmission Date: 20201102
  Serious: No
  Sender: FDA-Public Use
  Company Number: US-PFIZER INC-2017031780

PATIENT
  Age: 69 Year
  Sex: Male

DRUGS (16)
  1. AFREZZA [Concomitant]
     Active Substance: INSULIN HUMAN
     Dosage: (4 (60) AND 8 (30) UNIT INHALATION POWDER; SIG: 8?16 U PER MEAL)
     Dates: start: 20160415
  2. FLOMAX [Concomitant]
     Active Substance: TAMSULOSIN HYDROCHLORIDE
     Indication: TYPE 2 DIABETES MELLITUS
     Dosage: 0.4 MG, DAILY
     Dates: start: 20121220
  3. ASPIRIN [ACETYLSALICYLIC ACID] [Concomitant]
     Active Substance: ASPIRIN
     Indication: TYPE 2 DIABETES MELLITUS
     Dosage: 81 MG, UNK
     Route: 048
     Dates: start: 20121026
  4. CARVEDILOL. [Concomitant]
     Active Substance: CARVEDILOL
     Indication: TYPE 2 DIABETES MELLITUS
     Dosage: 3.125 MG, 2X/DAY
     Route: 048
  5. LEXAPRO [Concomitant]
     Active Substance: ESCITALOPRAM OXALATE
     Dosage: 20 MG, 1X/DAY
     Route: 048
     Dates: start: 20140128
  6. SIMVASTATIN. [Concomitant]
     Active Substance: SIMVASTATIN
     Indication: TYPE 2 DIABETES MELLITUS
     Dosage: 80 MG, 1X/DAY (QHS)
     Route: 048
     Dates: start: 20121228
  7. COZAAR [Concomitant]
     Active Substance: LOSARTAN POTASSIUM
     Indication: TYPE 2 DIABETES MELLITUS
     Dosage: 100 MG, 1X/DAY
     Route: 048
     Dates: start: 20120604
  8. PERCOCET [Concomitant]
     Active Substance: ACETAMINOPHEN\OXYCODONE HYDROCHLORIDE
     Indication: PAIN
     Dosage: 1 DF, AS NEEDED (1 TAB EVERY 4 HOURS PRN )[(OXYCODONE HYDROCHLORIDE 325 MG)/ (PARACETAMOL?5 MG)]
     Dates: start: 20130604, end: 20131227
  9. VALTREX [Concomitant]
     Active Substance: VALACYCLOVIR HYDROCHLORIDE
     Dosage: 500 MG, AS NEEDED (1 TABLET TWICE DAILY X 3 DAYS  PRN)
     Route: 048
     Dates: start: 20120927
  10. PLAVIX [Concomitant]
     Active Substance: CLOPIDOGREL BISULFATE
     Indication: TYPE 2 DIABETES MELLITUS
     Dosage: 75 MG, UNK
     Route: 048
  11. LASIX [Concomitant]
     Active Substance: FUROSEMIDE
     Indication: TYPE 2 DIABETES MELLITUS
     Dosage: 40 MG, AS NEEDED (QD)
     Route: 048
  12. HUMALOG [Concomitant]
     Active Substance: INSULIN LISPRO
     Indication: BLOOD INSULIN
     Dosage: 300 UNITES PER 24 HS
     Route: 058
     Dates: start: 20151112
  13. VICTOZA [Concomitant]
     Active Substance: LIRAGLUTIDE
     Dosage: 1.8 MG, DAILY
     Route: 058
  14. LYRICA [Suspect]
     Active Substance: PREGABALIN
     Indication: TYPE 2 DIABETES MELLITUS
     Dosage: 150 MG, 3X/DAY
     Route: 048
  15. ESCITALOPRAM OXALATE. [Concomitant]
     Active Substance: ESCITALOPRAM OXALATE
     Dosage: 20 MG, 1X/DAY
     Route: 048
  16. ONE TOUCH [Concomitant]
     Active Substance: DEXTROSE
     Dosage: UNK (ONE TOUCH ULTRA BLUE IN VITRO STRIP)

REACTIONS (4)
  - Burning sensation [Unknown]
  - Intentional product use issue [Unknown]
  - Product use in unapproved indication [Unknown]
  - Off label use [Unknown]
